FAERS Safety Report 16983102 (Version 1)
Quarter: 2019Q4

REPORT INFORMATION
  Report Type: Spontaneous
  Country: US (occurrence: US)
  Receive Date: 20191030
  Receipt Date: 20191030
  Transmission Date: 20200122
  Serious: Yes (Hospitalization)
  Sender: FDA-Public Use
  Company Number: None

PATIENT
  Age: 59 Year
  Sex: Male

DRUGS (5)
  1. MORPHINE [Concomitant]
     Active Substance: MORPHINE
  2. XGEVA [Suspect]
     Active Substance: DENOSUMAB
     Indication: BRONCHIAL CARCINOMA
     Dosage: ?          OTHER FREQUENCY:EVERY 4 WEEKS;?
     Route: 058
     Dates: start: 20190214
  3. TAGRISSO [Concomitant]
     Active Substance: OSIMERTINIB
  4. CALCIUM [Concomitant]
     Active Substance: CALCIUM
  5. BENADRYL [Concomitant]
     Active Substance: DIPHENHYDRAMINE HYDROCHLORIDE

REACTIONS (3)
  - Disease complication [None]
  - Chemotherapy [None]
  - Neoplasm malignant [None]

NARRATIVE: CASE EVENT DATE: 20190912
